FAERS Safety Report 9120408 (Version 1)
Quarter: 2013Q1

REPORT INFORMATION
  Report Type: Spontaneous
  Country: DE (occurrence: DE)
  Receive Date: 20130226
  Receipt Date: 20130226
  Transmission Date: 20140127
  Serious: Yes (Other)
  Sender: FDA-Public Use
  Company Number: GXKR2013DE000926

PATIENT
  Sex: 0

DRUGS (2)
  1. BISOPROLOL [Suspect]
     Dosage: MATERNAL DOSE. 10 MG/D, DOSAGE REDUCED FROM GW 24 UNTIL DELIVERY
     Route: 064
  2. THYRONAJOD [Concomitant]
     Dosage: MATERNAL DOSE: 25 UG/D / 75 UG/D
     Route: 064

REACTIONS (4)
  - Bradycardia neonatal [Recovered/Resolved]
  - Neonatal respiratory distress syndrome [Recovered/Resolved]
  - Small for dates baby [Recovered/Resolved]
  - Foetal exposure during pregnancy [Unknown]
